FAERS Safety Report 18934855 (Version 5)
Quarter: 2021Q2

REPORT INFORMATION
  Report Type: Spontaneous
  Country: JP (occurrence: JP)
  Receive Date: 20210224
  Receipt Date: 20210630
  Transmission Date: 20210717
  Serious: Yes (Other)
  Sender: FDA-Public Use
  Company Number: JP-GLAXOSMITHKLINE-JP2021JPN047997

PATIENT
  Age: 82 Year
  Sex: Male

DRUGS (6)
  1. RUPAFIN TABLETS [Concomitant]
     Indication: DERMATITIS ATOPIC
     Dosage: UNK, QD
     Route: 048
     Dates: start: 20200731, end: 20210218
  2. MUCODYNE TABLETS [Concomitant]
     Indication: ASTHMA
     Dosage: UNK, TID
     Route: 048
     Dates: start: 20161017
  3. NUCALA [Suspect]
     Active Substance: MEPOLIZUMAB
     Indication: ASTHMA
     Dosage: 100 MG
     Route: 058
     Dates: start: 20210114, end: 20210114
  4. SYMBICORT [Concomitant]
     Active Substance: BUDESONIDE\FORMOTEROL FUMARATE DIHYDRATE
     Indication: ASTHMA
     Dosage: UNK, BID
     Route: 055
     Dates: start: 20140107
  5. KAKKONTOKASENKYUSHIN^I [Concomitant]
     Active Substance: HERBALS
     Indication: RHINITIS ALLERGIC
     Dosage: UNK, TID
     Route: 048
     Dates: start: 20200331, end: 20210218
  6. TSUMURA BAKUMONDO?TO [Concomitant]
     Indication: ASTHMA
     Dosage: UNK, TID
     Route: 048
     Dates: start: 20190826

REACTIONS (2)
  - Blister [Recovered/Resolved]
  - Pemphigoid [Recovering/Resolving]

NARRATIVE: CASE EVENT DATE: 202101
